FAERS Safety Report 16011857 (Version 1)
Quarter: 2019Q1

REPORT INFORMATION
  Report Type: Spontaneous
  Country: US (occurrence: US)
  Receive Date: 20190227
  Receipt Date: 20190227
  Transmission Date: 20190418
  Serious: Yes (Hospitalization, Other)
  Sender: FDA-Public Use
  Company Number: US-ROCHE-2270793

PATIENT
  Sex: Male
  Weight: 99.88 kg

DRUGS (7)
  1. XOLAIR [Suspect]
     Active Substance: OMALIZUMAB
     Indication: ASTHMA
     Route: 058
     Dates: start: 20181112
  2. XOLAIR [Suspect]
     Active Substance: OMALIZUMAB
     Route: 058
     Dates: start: 20190108
  3. TAMIFLU [Suspect]
     Active Substance: OSELTAMIVIR PHOSPHATE
     Indication: INFLUENZA
     Route: 065
  4. XOLAIR [Suspect]
     Active Substance: OMALIZUMAB
     Route: 058
     Dates: start: 20181210
  5. SINGULAIR [Concomitant]
     Active Substance: MONTELUKAST SODIUM
  6. VENTOLIN [Concomitant]
     Active Substance: ALBUTEROL SULFATE
  7. ADVAIR HFA [Concomitant]
     Active Substance: FLUTICASONE PROPIONATE\SALMETEROL XINAFOATE

REACTIONS (13)
  - Pneumonia [Unknown]
  - Vasculitis [Unknown]
  - Thrombosis [Unknown]
  - Pain in extremity [Unknown]
  - Gait disturbance [Unknown]
  - Dyspnoea [Unknown]
  - Pain [Unknown]
  - Asthenia [Unknown]
  - Fall [Unknown]
  - Eosinophilic granulomatosis with polyangiitis [Unknown]
  - Contusion [Unknown]
  - Blood pressure decreased [Recovered/Resolved]
  - Bacterial infection [Unknown]
